FAERS Safety Report 24915026 (Version 1)
Quarter: 2025Q1

REPORT INFORMATION
  Report Type: Spontaneous
  Country: CN (occurrence: CN)
  Receive Date: 20250203
  Receipt Date: 20250203
  Transmission Date: 20250409
  Serious: Yes (Other)
  Sender: INFORLIFE
  Company Number: CN-INFO-20250016

PATIENT
  Age: 95 Year
  Sex: Female

DRUGS (25)
  1. MEROPENEM [Suspect]
     Active Substance: MEROPENEM
     Indication: Pneumonia
     Dates: start: 20230113
  2. CEFTRIAXONE [Suspect]
     Active Substance: CEFTRIAXONE
     Indication: Pneumonia
  3. CEFTRIAXONE [Suspect]
     Active Substance: CEFTRIAXONE
     Indication: Pneumonia
     Dates: start: 20221229
  4. MOXIFLOXACIN [Suspect]
     Active Substance: MOXIFLOXACIN
     Indication: Pneumonia
     Dates: start: 20230104
  5. THYMALFASIN [Concomitant]
     Active Substance: THYMALFASIN
     Indication: Immune enhancement therapy
     Dates: start: 20230104, end: 20230320
  6. TEICOPLANIN [Suspect]
     Active Substance: TEICOPLANIN
     Indication: Pneumonia
     Dates: start: 20230107, end: 20230113
  7. TEICOPLANIN [Suspect]
     Active Substance: TEICOPLANIN
     Indication: Pneumonia
     Dates: start: 20230224, end: 20230301
  8. CEFOPERAZONE\SULBACTAM [Suspect]
     Active Substance: CEFOPERAZONE\SULBACTAM
     Indication: Staphylococcal infection
     Dates: start: 20230107, end: 20230113
  9. PAXLOVID [Concomitant]
     Active Substance: NIRMATRELVIR\RITONAVIR
     Indication: Antiviral treatment
     Dates: start: 20230110, end: 20230115
  10. METHYLPREDNISOLONE [Suspect]
     Active Substance: METHYLPREDNISOLONE
     Indication: Antiinflammatory therapy
     Dates: start: 20230104, end: 20230115
  11. VORICONAZOLE [Suspect]
     Active Substance: VORICONAZOLE
     Indication: Pneumonia
     Dates: start: 20230118, end: 20230122
  12. TIGECYCLINE [Suspect]
     Active Substance: TIGECYCLINE
     Indication: Pneumonia
     Dates: start: 20230118
  13. TIGECYCLINE [Suspect]
     Active Substance: TIGECYCLINE
     Indication: Pneumonia
     Dates: start: 20230208, end: 20230217
  14. TIGECYCLINE [Suspect]
     Active Substance: TIGECYCLINE
     Indication: Pneumonia
     Dates: start: 20230301
  15. POLYMYXIN B [Suspect]
     Active Substance: POLYMYXIN B
     Indication: Pneumonia
     Dates: start: 20230118
  16. LEVOFLOXACIN [Suspect]
     Active Substance: LEVOFLOXACIN
     Indication: Pneumonia
     Dates: start: 20230203, end: 20230217
  17. PIPERACILLIN SODIUM\TAZOBACTAM SODIUM [Suspect]
     Active Substance: PIPERACILLIN SODIUM\TAZOBACTAM SODIUM
     Indication: Pneumonia
     Dates: start: 20230203, end: 20230208
  18. PIPERACILLIN SODIUM\TAZOBACTAM SODIUM [Suspect]
     Active Substance: PIPERACILLIN SODIUM\TAZOBACTAM SODIUM
     Indication: Pneumonia
     Dates: start: 20230217, end: 20230224
  19. AMIKACIN [Suspect]
     Active Substance: AMIKACIN
     Indication: Klebsiella infection
     Dates: start: 20230224
  20. MICAFUNGIN [Suspect]
     Active Substance: MICAFUNGIN SODIUM
     Indication: Klebsiella infection
     Dates: start: 20230112
  21. MICAFUNGIN [Suspect]
     Active Substance: MICAFUNGIN SODIUM
     Indication: Klebsiella infection
     Dates: start: 20230224, end: 20230307
  22. ISEPAMICIN [Suspect]
     Active Substance: ISEPAMICIN
     Indication: Klebsiella infection
     Dates: start: 20230224, end: 20230311
  23. COLISTIN [Suspect]
     Active Substance: COLISTIN
     Dates: start: 20230301, end: 20230307
  24. NIFEDIPINE [Concomitant]
     Active Substance: NIFEDIPINE
     Indication: Hypertension
  25. METFORMIN [Concomitant]
     Active Substance: METFORMIN HYDROCHLORIDE
     Indication: Diabetes mellitus

REACTIONS (3)
  - Dysbiosis [Recovered/Resolved]
  - Bacterial infection [Recovered/Resolved]
  - Superinfection fungal [Recovered/Resolved]

NARRATIVE: CASE EVENT DATE: 20230101
